FAERS Safety Report 8400117-0 (Version None)
Quarter: 2012Q2

REPORT INFORMATION
  Report Type: 
  Country: None (occurrence: None)
  Receive Date: 20120531
  Receipt Date: 20120528
  Transmission Date: 20120825
  Serious: Yes (Other)
  Sender: FDA-Public Use
  Company Number: VE-PFIZER INC-2012123332

PATIENT
  Age: 61 Year
  Sex: Male

DRUGS (2)
  1. PLAVIX [Concomitant]
     Indication: PROPHYLAXIS
     Dosage: 75 MG, ONCE DAILY
     Route: 048
  2. LIPITOR [Suspect]
     Indication: PROPHYLAXIS
     Dosage: 40 MG, ONCE DAILY
     Route: 048
     Dates: start: 20100101

REACTIONS (2)
  - BACTERIAL INFECTION [None]
  - RENAL FAILURE [None]
